FAERS Safety Report 6979641-3 (Version None)
Quarter: 2010Q3

REPORT INFORMATION
  Report Type: 
  Country: None (occurrence: None)
  Receive Date: 20100910
  Receipt Date: 20100910
  Transmission Date: 20110219
  Serious: Yes (Life-Threatening)
  Sender: FDA-Public Use
  Company Number: None

PATIENT
  Age: 54 Year
  Sex: Female
  Weight: 50 kg

DRUGS (4)
  1. ULTRAM ER [Suspect]
     Indication: PAIN MANAGEMENT
     Dosage: 600MG DAILY PO
     Route: 048
     Dates: start: 20030101, end: 20100101
  2. OXYCONTIN [Concomitant]
  3. PERCOCET [Concomitant]
  4. SOMA [Concomitant]

REACTIONS (2)
  - CONVULSION [None]
  - INCORRECT DOSE ADMINISTERED [None]
